FAERS Safety Report 5394089-3 (Version None)
Quarter: 2007Q3

REPORT INFORMATION
  Report Type: 
  Country: None (occurrence: None)
  Receive Date: 20070723
  Receipt Date: 20070302
  Transmission Date: 20080115
  Serious: No
  Sender: FDA-Public Use
  Company Number: A0641935A

PATIENT

DRUGS (2)
  1. AVANDIA [Suspect]
     Dosage: 4MG PER DAY
  2. INSULIN [Concomitant]

REACTIONS (2)
  - INSULIN RESISTANCE [None]
  - OVERDOSE [None]
